FAERS Safety Report 7548596-5 (Version None)
Quarter: 2011Q2

REPORT INFORMATION
  Report Type: 
  Country: None (occurrence: None)
  Receive Date: 20110615
  Receipt Date: 20110607
  Transmission Date: 20111010
  Serious: Yes (Hospitalization)
  Sender: FDA-Public Use
  Company Number: US-BRISTOL-MYERS SQUIBB COMPANY-15773344

PATIENT
  Age: 70 Year
  Sex: Female
  Weight: 73 kg

DRUGS (31)
  1. LEVBID [Concomitant]
     Route: 048
     Dates: start: 20090701
  2. ZOFRAN [Concomitant]
     Route: 048
     Dates: start: 20090818, end: 20100818
  3. ACIPHEX [Concomitant]
     Route: 048
     Dates: start: 20090701
  4. PLAVIX [Concomitant]
     Route: 048
     Dates: start: 20090101
  5. XANAX [Concomitant]
     Route: 048
     Dates: start: 20090701
  6. DEXAMETHASONE [Concomitant]
     Indication: PREMEDICATION
     Route: 042
     Dates: start: 20090819
  7. DOXYCYCLINE [Concomitant]
     Route: 048
     Dates: start: 20090902, end: 20100818
  8. HUMALOG [Concomitant]
     Dosage: 2009-28JAN11(2YEARS),JUL09-7JAN10(6MONTH)
     Route: 058
     Dates: start: 20090101, end: 20100107
  9. PALONOSETRON [Concomitant]
     Route: 042
     Dates: start: 20090819, end: 20091202
  10. POTASSIUM CHLORIDE [Concomitant]
     Dates: start: 20090701, end: 20091202
  11. RANITIDINE [Concomitant]
     Route: 042
     Dates: start: 20090819, end: 20091202
  12. OXYGEN [Concomitant]
     Indication: CHRONIC OBSTRUCTIVE PULMONARY DISEASE
     Route: 055
  13. CETUXIMAB [Suspect]
     Indication: NON-SMALL CELL LUNG CANCER
     Dosage: NO OF INF :18
     Route: 042
     Dates: start: 20090819, end: 20091216
  14. CARBOPLATIN [Suspect]
     Indication: NON-SMALL CELL LUNG CANCER
     Route: 042
     Dates: start: 20090819, end: 20091202
  15. EPOETIN ALFA [Concomitant]
     Dosage: 1DF=60000 UT
     Route: 058
     Dates: start: 20090923
  16. SLOW-MAG [Concomitant]
     Route: 042
     Dates: start: 20090930, end: 20100217
  17. NEURONTIN [Concomitant]
     Route: 048
     Dates: start: 20091118, end: 20100818
  18. PACLITAXEL [Suspect]
     Indication: NON-SMALL CELL LUNG CANCER
     Route: 042
     Dates: start: 20090819, end: 20091202
  19. LANTUS [Concomitant]
     Route: 058
     Dates: start: 20090701
  20. DIPHENHYDRAMINE HCL [Concomitant]
     Indication: PREMEDICATION
     Route: 042
     Dates: start: 20090819
  21. GABAPENTIN [Concomitant]
     Route: 048
     Dates: start: 20090824, end: 20100818
  22. GLUCOTROL [Concomitant]
     Route: 048
     Dates: start: 20090701, end: 20100107
  23. PAXIL [Concomitant]
     Route: 048
     Dates: start: 20090701
  24. GLUCOPHAGE [Concomitant]
     Route: 048
     Dates: start: 20090701, end: 20100707
  25. PRAVACHOL [Concomitant]
     Route: 048
     Dates: start: 20090701
  26. MEGESTROL ACETATE [Concomitant]
     Dates: start: 20090916
  27. ONDANSETRON [Concomitant]
     Route: 042
     Dates: start: 20090916, end: 20091125
  28. SODIUM CHLORIDE [Concomitant]
     Dates: start: 20090819, end: 20110224
  29. UNIVASC [Concomitant]
     Route: 048
     Dates: start: 20090701
  30. METOCLOPRAMIDE [Concomitant]
     Route: 042
     Dates: start: 20090916, end: 20091125
  31. ULTRAM [Concomitant]
     Dosage: AFTER MEALS AND BED TIME
     Route: 048
     Dates: start: 20090916, end: 20100818

REACTIONS (3)
  - RENAL FAILURE ACUTE [None]
  - MENTAL DISORDER [None]
  - DEHYDRATION [None]
